FAERS Safety Report 5707539-7 (Version None)
Quarter: 2008Q2

REPORT INFORMATION
  Report Type: 
  Country: None (occurrence: None)
  Receive Date: 20080416
  Receipt Date: 20080319
  Transmission Date: 20081010
  Serious: Yes (Other)
  Sender: FDA-Public Use
  Company Number: US-PFIZER INC-2008001033

PATIENT
  Sex: Male
  Weight: 58.1 kg

DRUGS (16)
  1. CHANTIX [Suspect]
     Indication: EX-SMOKER
     Dates: start: 20080101, end: 20080301
  2. GLUCOTROL [Concomitant]
  3. LASIX [Concomitant]
  4. PERCOCET [Concomitant]
  5. CARDIZEM CD [Concomitant]
  6. PRAVACHOL [Concomitant]
  7. ATENOLOL [Concomitant]
  8. TRANXENE-T [Concomitant]
  9. VASOTEC [Concomitant]
  10. FISH OIL [Concomitant]
  11. CENTRUM SILVER [Concomitant]
  12. CALCIUM [Concomitant]
  13. ALBUTEROL [Concomitant]
  14. OXYGEN [Concomitant]
  15. PRANDIN [Concomitant]
  16. ALL OTHER THERAPEUTIC PRODUCTS [Concomitant]

REACTIONS (9)
  - ABNORMAL DREAMS [None]
  - CATARACT [None]
  - CONSTIPATION [None]
  - FLATULENCE [None]
  - HALLUCINATION [None]
  - MIDDLE INSOMNIA [None]
  - NIGHTMARE [None]
  - RHEUMATOID ARTHRITIS [None]
  - SCREAMING [None]
